FAERS Safety Report 5524543-2 (Version None)
Quarter: 2007Q4

REPORT INFORMATION
  Report Type: 
  Country: None (occurrence: None)
  Receive Date: 20071123
  Receipt Date: 20071108
  Transmission Date: 20080405
  Serious: Yes (Other)
  Sender: FDA-Public Use
  Company Number: GB-RANBAXY-2007RR-11360

PATIENT

DRUGS (1)
  1. RISPERIDONE 0.5MG FILM-COATED TABLETS [Suspect]
     Dosage: 500 UG, QD
     Route: 048
     Dates: start: 20071005, end: 20071025

REACTIONS (1)
  - EPISTAXIS [None]
